FAERS Safety Report 5698548-5 (Version None)
Quarter: 2008Q2

REPORT INFORMATION
  Report Type: 
  Country: None (occurrence: None)
  Receive Date: 20080408
  Receipt Date: 20070102
  Transmission Date: 20081010
  Serious: Yes (Other)
  Sender: FDA-Public Use
  Company Number: US-BAYER-US-2006-026192

PATIENT
  Age: 51 Year
  Sex: Female
  Weight: 58 kg

DRUGS (9)
  1. CLIMARA [Suspect]
     Indication: MENOPAUSAL SYMPTOMS
     Route: 062
     Dates: start: 20010101, end: 20010101
  2. CLIMARA [Suspect]
     Route: 062
     Dates: start: 20010101, end: 20020101
  3. PREMARIN [Suspect]
     Indication: MENOPAUSAL SYMPTOMS
     Dates: start: 19980101, end: 20030101
  4. ESTRATEST [Suspect]
     Indication: MENOPAUSAL SYMPTOMS
     Dates: start: 19990101, end: 20010101
  5. LIPITOR [Concomitant]
     Indication: BLOOD CHOLESTEROL INCREASED
     Dates: start: 19980101
  6. SYNTHROID [Concomitant]
  7. FOSAMAX [Concomitant]
     Indication: OSTEOPOROSIS
  8. MIACALCIN [Concomitant]
     Indication: OSTEOPOROSIS
  9. LEVAQUIN [Concomitant]
     Indication: THYROID DISORDER

REACTIONS (1)
  - BREAST CANCER FEMALE [None]
